FAERS Safety Report 7966104-1 (Version None)
Quarter: 2011Q4

REPORT INFORMATION
  Report Type: 
  Country: None (occurrence: None)
  Receive Date: 20111208
  Receipt Date: 20111124
  Transmission Date: 20120403
  Serious: Yes (Hospitalization)
  Sender: FDA-Public Use
  Company Number: AU-CELGENEUS-008-21880-11102885

PATIENT
  Sex: Male

DRUGS (11)
  1. BACTRIM [Concomitant]
     Dosage: 800/160
     Route: 048
  2. REVLIMID [Suspect]
     Dosage: 7.5 MILLIGRAM
     Route: 048
     Dates: start: 20110913, end: 20111018
  3. REVLIMID [Suspect]
     Indication: MULTIPLE MYELOMA
     Dosage: 15 MILLIGRAM
     Route: 048
     Dates: start: 20110901
  4. DIGOXIN [Concomitant]
     Indication: ATRIAL FIBRILLATION
     Dosage: DOSE REDUCTION
     Route: 065
     Dates: start: 20111001
  5. RAMIPRIL [Concomitant]
     Dosage: 2.5 MILLIGRAM
     Route: 048
  6. DIGOXIN [Concomitant]
     Dosage: 62.5 MICROGRAM
     Route: 065
  7. SIMVASTATIN [Concomitant]
     Dosage: 20 MILLIGRAM
     Route: 065
  8. THALOMID [Suspect]
     Indication: MULTIPLE MYELOMA
     Dosage: 100 MILLIGRAM
     Route: 048
     Dates: start: 20110801, end: 20110901
  9. GLICLAZIDE [Concomitant]
     Indication: DIABETES MELLITUS
     Dosage: 40 MILLIGRAM
     Route: 065
  10. WARFARIN SODIUM [Concomitant]
     Indication: ATRIAL FIBRILLATION
     Route: 065
  11. EZITIMIBE [Concomitant]
     Dosage: 10 MILLIGRAM
     Route: 065

REACTIONS (3)
  - INAPPROPRIATE SCHEDULE OF DRUG ADMINISTRATION [None]
  - ACUTE PULMONARY OEDEMA [None]
  - INCORRECT DOSE ADMINISTERED [None]
